FAERS Safety Report 7048120-X (Version None)
Quarter: 2010Q4

REPORT INFORMATION
  Report Type: 
  Country: None (occurrence: None)
  Receive Date: 20101015
  Receipt Date: 20101005
  Transmission Date: 20110411
  Serious: Yes (Hospitalization, Other)
  Sender: FDA-Public Use
  Company Number: GB-ELI_LILLY_AND_COMPANY-GB201010000999

PATIENT
  Age: 63 Year
  Sex: Male

DRUGS (15)
  1. BYETTA [Suspect]
     Indication: DIABETES MELLITUS
     Dosage: 10 MG, UNKNOWN
     Dates: end: 20100831
  2. ATORVASTATIN [Concomitant]
     Dosage: 20 MG, DAILY (1/D)
     Route: 048
  3. CLOPIDOGREL [Concomitant]
     Dosage: 75 MG, DAILY (1/D)
     Route: 048
  4. FUROSEMIDE [Concomitant]
     Dosage: 80 MG, DAILY (1/D)
     Route: 048
  5. GLICLAZIDE [Concomitant]
     Dosage: 10 MG, DAILY (1/D)
     Route: 048
  6. IRBESARTAN [Concomitant]
     Dosage: 300 MG, DAILY (1/D)
     Route: 048
  7. ISOTARD XL [Concomitant]
     Dosage: 60 MG, 2/D
     Route: 048
  8. METFORMIN [Concomitant]
     Dosage: 1 G, 2/D
     Route: 048
  9. METOPROLOL [Concomitant]
     Dosage: 50 MG, 2/D
     Route: 048
  10. MOXONIDINE [Concomitant]
     Dosage: 300 MG, 2/D
     Route: 048
  11. NICORANDIL [Concomitant]
     Dosage: 40 MG, 2/D
     Route: 048
  12. NITROLINGUAL [Concomitant]
     Dosage: 2 D/F, AS NEEDED
     Route: 060
  13. OMEPRAZOLE [Concomitant]
     Dosage: 20 MG, DAILY (1/D)
     Route: 048
  14. SPIRONOLACTONE [Concomitant]
     Dosage: 25 MG, DAILY (1/D)
     Route: 048
  15. DILTIAZEM HYDROCHLORIDE [Concomitant]
     Dosage: 300 MG, DAILY (1/D)
     Route: 048

REACTIONS (1)
  - PANCREATITIS [None]
